FAERS Safety Report 18275809 (Version 1)
Quarter: 2020Q3

REPORT INFORMATION
  Report Type: Spontaneous
  Country: US (occurrence: US)
  Receive Date: 20200917
  Receipt Date: 20200917
  Transmission Date: 20201103
  Serious: Yes (Hospitalization)
  Sender: FDA-Public Use
  Company Number: US-JIANGSU HENGRUI MEDICINE CO., LTD.-2090832

PATIENT
  Age: 14 Year
  Sex: Male
  Weight: 119.3 kg

DRUGS (12)
  1. SODIUM CHLORIDE. [Concomitant]
     Active Substance: SODIUM CHLORIDE
     Dates: start: 20190410, end: 20190410
  2. DIPHENHYDRAMINE. [Concomitant]
     Active Substance: DIPHENHYDRAMINE
     Dates: start: 20190410, end: 20190410
  3. TOCILIZUMAB RECOMBINANT [Concomitant]
     Active Substance: TOCILIZUMAB
     Dates: start: 20190411, end: 20190411
  4. KYMRIAH [Suspect]
     Active Substance: TISAGENLECLEUCEL
     Dates: start: 20190410, end: 20190410
  5. LEVETIRACETAM. [Concomitant]
     Active Substance: LEVETIRACETAM
     Dates: start: 20190410, end: 20190413
  6. CYCLOPHOSPHAMIDE FOR INJECTION USP, 500 MG, 1 G AND 2 G PER SINGLE?DOS [Suspect]
     Active Substance: CYCLOPHOSPHAMIDE
     Indication: ACUTE LYMPHOCYTIC LEUKAEMIA REFRACTORY
  7. CALCIUM CARBONATE WITH VITAMIN D (CHOLECALCIFEROL) [Concomitant]
     Active Substance: CALCIUM CARBONATE\CHOLECALCIFEROL
     Dates: start: 20190404
  8. FLUDARABINE [Suspect]
     Active Substance: FLUDARABINE PHOSPHATE
  9. CHLORHEXIDINE GLUCONANTE [Concomitant]
     Active Substance: CHLORHEXIDINE GLUCONATE
     Dates: start: 20190404, end: 20190417
  10. ACETAMINOPHEN. [Concomitant]
     Active Substance: ACETAMINOPHEN
     Dates: start: 20190410, end: 20190410
  11. NIFEDIPINE. [Concomitant]
     Active Substance: NIFEDIPINE
     Dates: start: 20190410, end: 20190411
  12. CALCIUM CARBONATE. [Concomitant]
     Active Substance: CALCIUM CARBONATE
     Dates: start: 20190404, end: 20190421

REACTIONS (1)
  - Disseminated intravascular coagulation [Unknown]
